FAERS Safety Report 10049821 (Version 2)
Quarter: 2014Q2

REPORT INFORMATION
  Report Type: Spontaneous
  Country: US (occurrence: US)
  Receive Date: 20140401
  Receipt Date: 20140401
  Transmission Date: 20141212
  Serious: Yes (Hospitalization, Disabling, Other)
  Sender: FDA-Public Use
  Company Number: US-009507513-1012USA01882

PATIENT
  Sex: Female
  Weight: 58.6 kg

DRUGS (16)
  1. FOSAMAX [Suspect]
     Indication: OSTEOPOROSIS PROPHYLAXIS
     Dosage: UNK UNK, QD
     Route: 048
  2. FOSAMAX [Suspect]
     Indication: OSTEOPENIA
     Dosage: 70 MG, QW
     Route: 048
  3. FOSAMAX [Suspect]
     Indication: OSTEOPOROSIS
  4. CENTRUM (MINERALS (UNSPECIFIED) (+) VITAMINS (UNSPECIFIED)) [Concomitant]
     Dosage: UNK UNK, QD
     Route: 048
  5. CENTRUM SILVER [Concomitant]
     Dosage: UNK UNK, QD
     Route: 048
  6. XANAX [Concomitant]
     Route: 048
  7. PEPCID [Concomitant]
     Route: 048
  8. ZOLOFT [Concomitant]
     Dosage: 100 MG, QD
  9. TAMOXIFEN CITRATE [Concomitant]
     Dosage: 20 MG, QD
     Dates: start: 1997
  10. COREG [Concomitant]
     Dosage: 6.25 MG, BID
     Route: 048
  11. THERAPY UNSPECIFIED [Concomitant]
  12. VITAMIN D (UNSPECIFIED) [Concomitant]
     Indication: OSTEOPOROSIS
     Dosage: 1000 DF, QD
  13. CALCIUM (UNSPECIFIED) [Concomitant]
     Indication: OSTEOPOROSIS
  14. ESTROGENS (UNSPECIFIED) [Concomitant]
     Indication: OSTEOPOROSIS
     Dosage: UNK
     Dates: end: 199707
  15. CORTICOSTEROIDS (UNSPECIFIED) [Concomitant]
     Indication: PSORIASIS
     Route: 061
  16. PREDNISONE [Concomitant]
     Indication: COLITIS ULCERATIVE

REACTIONS (55)
  - Intramedullary rod insertion [Unknown]
  - Intramedullary rod insertion [Unknown]
  - Low turnover osteopathy [Not Recovered/Not Resolved]
  - Osteoporosis [Not Recovered/Not Resolved]
  - Stress fracture [Not Recovered/Not Resolved]
  - Fall [Unknown]
  - Hypertension [Unknown]
  - Hyperlipidaemia [Unknown]
  - Haemoglobin decreased [Recovering/Resolving]
  - Haematocrit decreased [Recovering/Resolving]
  - Cardiac failure congestive [Unknown]
  - Breast cancer stage II [Unknown]
  - Modified radical mastectomy [Unknown]
  - Intraductal proliferative breast lesion [Unknown]
  - Mastectomy [Unknown]
  - Deafness [Unknown]
  - Breast reconstruction [Unknown]
  - Atypical femur fracture [Unknown]
  - Atypical femur fracture [Unknown]
  - Tooth disorder [Unknown]
  - Blood potassium abnormal [Unknown]
  - Tooth disorder [Unknown]
  - Sinus disorder [Unknown]
  - Hypercholesterolaemia [Not Recovered/Not Resolved]
  - Tooth disorder [Unknown]
  - Hypothyroidism [Unknown]
  - Nervousness [Unknown]
  - Anxiety [Unknown]
  - Dental caries [Unknown]
  - Sinus disorder [Unknown]
  - Bone loss [Unknown]
  - Gingival disorder [Unknown]
  - Fungal infection [Unknown]
  - Viral cardiomyopathy [Unknown]
  - Atrophic vulvovaginitis [Unknown]
  - Blood parathyroid hormone increased [Unknown]
  - Hypercalciuria [Unknown]
  - Haemorrhagic anaemia [Recovering/Resolving]
  - Cardiomyopathy [Unknown]
  - Gingival abscess [Unknown]
  - Haematocrit decreased [Unknown]
  - Blood potassium decreased [Unknown]
  - Blood creatinine increased [Unknown]
  - Full blood count abnormal [Unknown]
  - Red blood cell count decreased [Unknown]
  - Drug intolerance [Unknown]
  - Hypotension [Recovered/Resolved]
  - Tinnitus [Unknown]
  - Upper respiratory tract infection [Unknown]
  - Kyphosis [Unknown]
  - Tonsillectomy [Unknown]
  - Arthritis [Unknown]
  - Depression [Unknown]
  - Flatulence [Unknown]
  - Drug ineffective [Unknown]
